FAERS Safety Report 4932978-1 (Version None)
Quarter: 2006Q1

REPORT INFORMATION
  Report Type: 
  Country: None (occurrence: None)
  Receive Date: 20060301
  Receipt Date: 20060119
  Transmission Date: 20060701
  Serious: Yes (Other)
  Sender: FDA-Public Use
  Company Number: 2006004456

PATIENT
  Age: 60 Year
  Sex: Male
  Weight: 140.6151 kg

DRUGS (7)
  1. VIAGRA [Suspect]
     Indication: ERECTILE DYSFUNCTION
     Dosage: 50 MG (50 MG, 1 AS NECESSARY), ORAL
     Route: 048
  2. HYDROCHLOROTHIAZIDE [Concomitant]
  3. CAPOTEN [Concomitant]
  4. K-DUR 10 [Concomitant]
  5. DILTIAZEM [Concomitant]
  6. SOTALOL HCL [Concomitant]
  7. CARBAMAZEPINE [Concomitant]

REACTIONS (6)
  - CONDITION AGGRAVATED [None]
  - DRUG INEFFECTIVE [None]
  - ORAL INTAKE REDUCED [None]
  - PREMATURE EJACULATION [None]
  - TRIGEMINAL NEURALGIA [None]
  - WEIGHT DECREASED [None]
